FAERS Safety Report 9438365 (Version 6)
Quarter: 2014Q1

REPORT INFORMATION
  Report Type: Spontaneous
  Country: US (occurrence: US)
  Receive Date: 20130802
  Receipt Date: 20140325
  Transmission Date: 20141002
  Serious: Yes (Other)
  Sender: FDA-Public Use
  Company Number: US-JNJFOC-20130800619

PATIENT
  Sex: Male

DRUGS (27)
  1. RISPERDAL [Suspect]
     Indication: BIPOLAR DISORDER
     Route: 048
  2. RISPERDAL [Suspect]
     Indication: BIPOLAR DISORDER
     Route: 048
     Dates: start: 1998, end: 2001
  3. RISPERDAL [Suspect]
     Indication: BIPOLAR DISORDER
     Route: 048
     Dates: start: 2005, end: 2013
  4. RISPERDAL [Suspect]
     Indication: SCHIZOPHRENIA
     Route: 048
  5. RISPERDAL [Suspect]
     Indication: SCHIZOPHRENIA
     Route: 048
     Dates: start: 1998, end: 2001
  6. RISPERDAL [Suspect]
     Indication: SCHIZOPHRENIA
     Route: 048
     Dates: start: 2005, end: 2013
  7. RISPERDAL [Suspect]
     Indication: BORDERLINE PERSONALITY DISORDER
     Route: 048
  8. RISPERDAL [Suspect]
     Indication: BORDERLINE PERSONALITY DISORDER
     Route: 048
     Dates: start: 2005, end: 2013
  9. RISPERDAL [Suspect]
     Indication: BORDERLINE PERSONALITY DISORDER
     Route: 048
     Dates: start: 1998, end: 2001
  10. RISPERDAL [Suspect]
     Indication: AGITATION
     Route: 048
     Dates: start: 2005, end: 2013
  11. RISPERDAL [Suspect]
     Indication: AGITATION
     Route: 048
     Dates: start: 1998, end: 2001
  12. RISPERDAL [Suspect]
     Indication: AGITATION
     Route: 048
  13. RISPERDAL [Suspect]
     Indication: DEPRESSION
     Route: 048
  14. RISPERDAL [Suspect]
     Indication: DEPRESSION
     Route: 048
     Dates: start: 1998, end: 2001
  15. RISPERDAL [Suspect]
     Indication: DEPRESSION
     Route: 048
     Dates: start: 2005, end: 2013
  16. RISPERDAL [Suspect]
     Indication: ATTENTION DEFICIT/HYPERACTIVITY DISORDER
     Route: 048
     Dates: start: 1998, end: 2001
  17. RISPERDAL [Suspect]
     Indication: ATTENTION DEFICIT/HYPERACTIVITY DISORDER
     Route: 048
     Dates: start: 2005, end: 2013
  18. RISPERDAL [Suspect]
     Indication: ATTENTION DEFICIT/HYPERACTIVITY DISORDER
     Route: 048
  19. ELAVIL [Concomitant]
     Indication: PRODUCT USED FOR UNKNOWN INDICATION
     Route: 065
  20. ZYPREXA [Concomitant]
     Indication: DEPRESSION
     Route: 065
  21. ZYPREXA [Concomitant]
     Indication: MOOD SWINGS
     Route: 065
  22. ZYPREXA [Concomitant]
     Indication: SCHIZOPHRENIA
     Route: 065
  23. ADDERALL [Concomitant]
     Indication: PRODUCT USED FOR UNKNOWN INDICATION
     Route: 065
  24. ZOLOFT [Concomitant]
     Indication: PRODUCT USED FOR UNKNOWN INDICATION
     Route: 065
  25. CITALOPRAM [Concomitant]
     Indication: PRODUCT USED FOR UNKNOWN INDICATION
     Route: 065
  26. FLUOXETINE [Concomitant]
     Indication: PRODUCT USED FOR UNKNOWN INDICATION
     Route: 065
  27. VISTARIL [Concomitant]
     Indication: PRODUCT USED FOR UNKNOWN INDICATION
     Route: 065

REACTIONS (8)
  - Obesity [Unknown]
  - Nervous system disorder [Unknown]
  - Central nervous system lesion [Unknown]
  - Mental disorder [Unknown]
  - Gynaecomastia [Unknown]
  - Abnormal weight gain [Unknown]
  - Polyuria [Unknown]
  - Polydipsia [Unknown]
